FAERS Safety Report 9013745 (Version 3)
Quarter: 2013Q1

REPORT INFORMATION
  Report Type: Spontaneous
  Country: ES (occurrence: None)
  Receive Date: 20121231
  Receipt Date: 20130125
  Transmission Date: 20140127
  Serious: Yes (Life-Threatening)
  Sender: FDA-Public Use
  Company Number: MPS1-1000897

PATIENT
  Age: 12 Year
  Sex: Male
  Weight: 35 kg

DRUGS (11)
  1. ALDURAZYME (LARONIDASE) CONCENTRATE FOR SOLUTION FOR INFUSION [Suspect]
     Indication: MUCOPOLYSACCHARIDOSIS I
     Dosage: 100 U/KG,
     Route: 042
     Dates: start: 2003
  2. POLARAMINE (DEXCHLORPHENIRAMINE MALEATE) UNK TO UNK [Concomitant]
  3. FLIXOTIDE (FLUTICASONE PROPIONATE) [Concomitant]
  4. VENTOLIN (SALBUTAMOL SULFATE) [Concomitant]
  5. LUMINAL (PHENOBARBITAL SODIUM) [Concomitant]
  6. KEPPRA (LEVETIRACETAM) [Concomitant]
  7. URSACOL (URSODEOXYCHOLIC ACID) [Concomitant]
  8. MOTILIUM (DOMPERIDONE MALEATE) [Concomitant]
  9. OMEPRAZOLE (OMEPRAZOLE) [Concomitant]
  10. XALATAN (LATANOPROST) [Concomitant]
  11. SEGURIL [Concomitant]

REACTIONS (6)
  - Acute pulmonary oedema [None]
  - Malaise [None]
  - Acute respiratory failure [None]
  - Tachycardia [None]
  - Hypertension [None]
  - Bronchospasm [None]
